FAERS Safety Report 22823035 (Version 10)
Quarter: 2023Q4

REPORT INFORMATION
  Report Type: Spontaneous
  Country: US (occurrence: US)
  Receive Date: 20230815
  Receipt Date: 20231211
  Transmission Date: 20240110
  Serious: Yes (Other)
  Sender: FDA-Public Use
  Company Number: US-PFIZER INC-PV202300138178

PATIENT
  Age: 11 Year
  Sex: Male
  Weight: 28.295 kg

DRUGS (3)
  1. GENOTROPIN [Suspect]
     Active Substance: SOMATROPIN
     Indication: Growth disorder
     Dosage: 1.4 MG, DAILY
  2. METHYLPHENIDATE [Concomitant]
     Active Substance: METHYLPHENIDATE
     Indication: Attention deficit hyperactivity disorder
     Dosage: 10 MG, 2X/DAY
  3. CYPROHEPTADINE [Concomitant]
     Active Substance: CYPROHEPTADINE
     Indication: Appetite disorder
     Dosage: UNK
     Route: 048

REACTIONS (7)
  - Growth retardation [Unknown]
  - Device information output issue [Unknown]
  - Drug dose omission by device [Unknown]
  - Device leakage [Unknown]
  - Poor quality device used [Unknown]
  - Device issue [Unknown]
  - Device malfunction [Unknown]

NARRATIVE: CASE EVENT DATE: 20230801
